FAERS Safety Report 7337079-3 (Version None)
Quarter: 2011Q1

REPORT INFORMATION
  Report Type: 
  Country: None (occurrence: None)
  Receive Date: 20110308
  Receipt Date: 20100907
  Transmission Date: 20110831
  Serious: Yes (Hospitalization)
  Sender: FDA-Public Use
  Company Number: DE-CEPHALON-2011001049

PATIENT
  Sex: Male
  Weight: 79 kg

DRUGS (8)
  1. MABTHERA [Suspect]
     Indication: CHRONIC LYMPHOCYTIC LEUKAEMIA
     Dates: start: 20100531
  2. METFORMIN [Concomitant]
  3. METOPROLOL [Concomitant]
  4. ENALAPRIL MALEATE [Concomitant]
  5. BENDAMUSTINE HCL [Suspect]
     Indication: CHRONIC LYMPHOCYTIC LEUKAEMIA
     Route: 041
     Dates: start: 20100503
  6. TAMSULOSIN [Concomitant]
  7. CLOPIDOGREL [Concomitant]
  8. AMLODIPINE [Concomitant]

REACTIONS (3)
  - PYREXIA [None]
  - PNEUMONIA KLEBSIELLA [None]
  - NEUTROPENIA [None]
